FAERS Safety Report 15510051 (Version 1)
Quarter: 2018Q4

REPORT INFORMATION
  Report Type: Report from Study
  Country: US (occurrence: US)
  Receive Date: 20181016
  Receipt Date: 20181016
  Transmission Date: 20190205
  Serious: No
  Sender: FDA-Public Use
  Company Number: US-AMGEN-USASL2018012546

PATIENT
  Age: 53 Year
  Sex: Female

DRUGS (1)
  1. NEULASTA [Suspect]
     Active Substance: PEGFILGRASTIM
     Indication: BREAST CANCER
     Dosage: UNK, Q2WK
     Route: 065
     Dates: start: 201709

REACTIONS (6)
  - Mobility decreased [Unknown]
  - Asthenia [Unknown]
  - Off label use [Unknown]
  - Fatigue [Unknown]
  - Emotional disorder [Unknown]
  - Muscle spasms [Recovering/Resolving]

NARRATIVE: CASE EVENT DATE: 201709
